FAERS Safety Report 25933919 (Version 1)
Quarter: 2025Q4

REPORT INFORMATION
  Report Type: Spontaneous
  Country: US (occurrence: None)
  Receive Date: 20251016
  Receipt Date: 20251016
  Transmission Date: 20260118
  Serious: Yes (Death)
  Sender: FDA-CTU
  Company Number: None

PATIENT
  Age: 79 Year
  Sex: Female
  Weight: 58.6 kg

DRUGS (9)
  1. TERIFLUNOMIDE [Suspect]
     Active Substance: TERIFLUNOMIDE
     Indication: Multiple sclerosis
     Dosage: FREQUENCY : DAILY;?
     Route: 048
     Dates: start: 20241115, end: 20251015
  2. Aubagio 14 mg tablets [Concomitant]
  3. SERTRALINE HYDROCHLORIDE [Concomitant]
     Active Substance: SERTRALINE HYDROCHLORIDE
  4. AMLODIPINE [Concomitant]
     Active Substance: AMLODIPINE BESYLATE
  5. Donepezil 10mg tablets [Concomitant]
  6. Eliquis 5 mg tablets [Concomitant]
  7. LOSARTAN [Concomitant]
     Active Substance: LOSARTAN
  8. Rosuvastatin 10 mg tablets [Concomitant]
  9. Vitamin B-12 1000 mcg tablets [Concomitant]

REACTIONS (1)
  - Dementia [None]

NARRATIVE: CASE EVENT DATE: 20251015
